FAERS Safety Report 13945395 (Version 3)
Quarter: 2017Q3

REPORT INFORMATION
  Report Type: Spontaneous
  Country: HR (occurrence: HR)
  Receive Date: 20170907
  Receipt Date: 20170912
  Transmission Date: 20171128
  Serious: Yes (Hospitalization, Other)
  Sender: FDA-Public Use
  Company Number: PHHY2017HR130231

PATIENT
  Age: 45 Year
  Sex: Female
  Weight: 59 kg

DRUGS (2)
  1. MAXITROL [Suspect]
     Active Substance: DEXAMETHASONE\NEOMYCIN SULFATE\POLYMYXIN B SULFATE
     Indication: EXTERNAL EAR PAIN
     Dosage: 2 GTT, 5QD
     Route: 001
     Dates: start: 20170806, end: 20170808
  2. TRAMADOL. [Concomitant]
     Active Substance: TRAMADOL
     Indication: PRODUCT USED FOR UNKNOWN INDICATION
     Route: 042

REACTIONS (5)
  - Erythema [Recovering/Resolving]
  - Paraesthesia [Recovering/Resolving]
  - Swelling face [Recovering/Resolving]
  - Ear pain [Recovering/Resolving]
  - Ear swelling [Recovering/Resolving]

NARRATIVE: CASE EVENT DATE: 20170806
